FAERS Safety Report 23203194 (Version 1)
Quarter: 2023Q4

REPORT INFORMATION
  Report Type: Report from Study
  Country: BR (occurrence: BR)
  Receive Date: 20231120
  Receipt Date: 20231120
  Transmission Date: 20240110
  Serious: Yes (Other)
  Sender: FDA-Public Use
  Company Number: BR-BIOGEN-2023BI01235880

PATIENT
  Age: 53 Year
  Sex: Female
  Weight: 53 kg

DRUGS (4)
  1. TYSABRI [Suspect]
     Active Substance: NATALIZUMAB
     Indication: Multiple sclerosis
     Route: 050
     Dates: start: 20230920
  2. CARBAMAZEPINE [Concomitant]
     Active Substance: CARBAMAZEPINE
     Indication: Muscle spasms
     Route: 050
  3. OXCARBAZEPINE [Concomitant]
     Active Substance: OXCARBAZEPINE
     Indication: Muscle spasms
     Route: 050
     Dates: start: 202309
  4. Fisiofort [Concomitant]
     Indication: Pain
     Route: 050

REACTIONS (17)
  - Noninfectious myelitis [Not Recovered/Not Resolved]
  - Spinal column injury [Not Recovered/Not Resolved]
  - Mobility decreased [Unknown]
  - Memory impairment [Not Recovered/Not Resolved]
  - Drug ineffective [Unknown]
  - Multiple sclerosis [Unknown]
  - Tremor [Not Recovered/Not Resolved]
  - Band sensation [Not Recovered/Not Resolved]
  - Insomnia [Unknown]
  - Osteoporosis [Unknown]
  - Thyroid mass [Unknown]
  - Blood cholesterol abnormal [Unknown]
  - Fall [Recovered/Resolved]
  - Balance disorder [Unknown]
  - Weight decreased [Unknown]
  - Joint stiffness [Unknown]
  - Hypersensitivity [Unknown]

NARRATIVE: CASE EVENT DATE: 20230901
